FAERS Safety Report 16198757 (Version 1)
Quarter: 2019Q2

REPORT INFORMATION
  Report Type: Spontaneous
  Country: DE (occurrence: DE)
  Receive Date: 20190415
  Receipt Date: 20190415
  Transmission Date: 20190711
  Serious: Yes (Congenital Anomaly, Other)
  Sender: FDA-Public Use
  Company Number: DE-ALLERGAN-1916131US

PATIENT
  Age: 1 Day
  Sex: Female
  Weight: 3.14 kg

DRUGS (4)
  1. GRIPPEIMPFSTOFF [Concomitant]
     Active Substance: INFLUENZA VIRUS VACCINE
     Indication: MATERNAL EXPOSURE TIMING UNSPECIFIED
     Dosage: UNK, UNKNOWN
     Route: 064
  2. FOLSAURE [Concomitant]
     Active Substance: FOLIC ACID
     Indication: MATERNAL EXPOSURE TIMING UNSPECIFIED
     Dosage: UNK, UNKNOWN
     Route: 064
  3. CITALOPRAM HYDROBROMIDE - BP [Suspect]
     Active Substance: CITALOPRAM HYDROBROMIDE
     Indication: MATERNAL EXPOSURE TIMING UNSPECIFIED
     Dosage: 10 MG, QD
     Route: 064
     Dates: start: 20170819, end: 20180525
  4. L-THYROXIN [Concomitant]
     Active Substance: LEVOTHYROXINE SODIUM
     Indication: MATERNAL EXPOSURE TIMING UNSPECIFIED
     Dosage: 50 [?G/D ]
     Route: 064
     Dates: start: 20180525, end: 20180525

REACTIONS (4)
  - Bradycardia neonatal [Recovered/Resolved]
  - Foetal exposure during pregnancy [Unknown]
  - Supraventricular extrasystoles [Recovered/Resolved]
  - Oral neoplasm benign [Recovered/Resolved with Sequelae]

NARRATIVE: CASE EVENT DATE: 20180525
